FAERS Safety Report 9928684 (Version 1)
Quarter: 2014Q1

REPORT INFORMATION
  Report Type: Spontaneous
  Country: US (occurrence: US)
  Receive Date: 20140227
  Receipt Date: 20140227
  Transmission Date: 20141002
  Serious: No
  Sender: FDA-Public Use
  Company Number: US-009507513-1402USA012026

PATIENT
  Age: 57 Year
  Sex: Male

DRUGS (1)
  1. PROSCAR [Suspect]
     Indication: PROSTATOMEGALY
     Dosage: 5 MG, QD
     Route: 048
     Dates: start: 201312

REACTIONS (2)
  - Ejaculation failure [Not Recovered/Not Resolved]
  - Erectile dysfunction [Not Recovered/Not Resolved]
